FAERS Safety Report 20391401 (Version 1)
Quarter: 2022Q1

REPORT INFORMATION
  Report Type: Spontaneous
  Country: US (occurrence: None)
  Receive Date: 20220127
  Receipt Date: 20220127
  Transmission Date: 20220423
  Serious: Yes (Other)
  Sender: FDA-Public Use
  Company Number: None

PATIENT
  Age: 29 Year
  Sex: Female
  Weight: 63 kg

DRUGS (1)
  1. HUMIRA [Suspect]
     Active Substance: ADALIMUMAB
     Indication: Crohn^s disease
     Dosage: OTHER QUANTITY : 1 INJECTION(S);?OTHER FREQUENCY : ONCE EVERY 14 DAYS;?
     Route: 058
     Dates: start: 20210723, end: 20220124

REACTIONS (1)
  - Dysplastic naevus [None]

NARRATIVE: CASE EVENT DATE: 20220105
